FAERS Safety Report 24697067 (Version 1)
Quarter: 2024Q4

REPORT INFORMATION
  Report Type: Spontaneous
  Country: US (occurrence: US)
  Receive Date: 20241204
  Receipt Date: 20241204
  Transmission Date: 20250115
  Serious: No
  Sender: BAYER HEALTHCARE PHARMACEUTICALS INC.
  Company Number: US-BAYER-2024A171114

PATIENT
  Age: 59 Year
  Sex: Male

DRUGS (1)
  1. KOVALTRY [Suspect]
     Active Substance: ANTIHEMOPHILIC FACTOR, HUMAN RECOMBINANT
     Indication: Factor VIII deficiency
     Dosage: 4300 IU, PRN
     Route: 042
     Dates: start: 202306

REACTIONS (2)
  - Gingival bleeding [None]
  - Fatigue [None]

NARRATIVE: CASE EVENT DATE: 20241101
